FAERS Safety Report 15467434 (Version 2)
Quarter: 2019Q1

REPORT INFORMATION
  Report Type: Spontaneous
  Country: DE (occurrence: DE)
  Receive Date: 20181005
  Receipt Date: 20190104
  Transmission Date: 20190417
  Serious: Yes (Other)
  Sender: FDA-Public Use
  Company Number: DE-HIKMA PHARMACEUTICALS USA INC.-DE-H14001-18-07630

PATIENT
  Age: 23 Year
  Sex: Male

DRUGS (4)
  1. CABOZANTINIB [Suspect]
     Active Substance: CABOZANTINIB
     Indication: THYROID CANCER METASTATIC
  2. CABOZANTINIB [Suspect]
     Active Substance: CABOZANTINIB
     Indication: MEDULLARY THYROID CANCER
  3. ZOLEDRONIC ACID [Suspect]
     Active Substance: ZOLEDRONIC ACID
     Indication: METASTASES TO BONE
     Route: 042
  4. CABOZANTINIB [Suspect]
     Active Substance: CABOZANTINIB
     Indication: METASTASES TO BONE
     Route: 065

REACTIONS (5)
  - Thrombotic microangiopathy [Not Recovered/Not Resolved]
  - End stage renal disease [Not Recovered/Not Resolved]
  - Microangiopathic haemolytic anaemia [Recovered/Resolved]
  - Blood pressure decreased [Unknown]
  - Vomiting [Unknown]
